FAERS Safety Report 7000253-X (Version None)
Quarter: 2010Q3

REPORT INFORMATION
  Report Type: 
  Country: None (occurrence: None)
  Receive Date: 20100920
  Receipt Date: 20100301
  Transmission Date: 20110219
  Serious: Yes (Other)
  Sender: FDA-Public Use
  Company Number: US-ASTRAZENECA-2009UW20658

PATIENT
  Sex: Male
  Weight: 105.7 kg

DRUGS (6)
  1. SEROQUEL [Suspect]
     Route: 048
     Dates: start: 20090115
  2. DIAZEPAM [Concomitant]
     Dates: start: 20081205
  3. LEVOTHYROXINE [Concomitant]
     Dates: start: 20081229
  4. ATENOLOL [Concomitant]
     Dates: start: 20090205
  5. LORAZEPAM [Concomitant]
     Dates: start: 20090205
  6. FLUOXETINE [Concomitant]
     Dates: start: 20090313

REACTIONS (3)
  - DIABETES MELLITUS [None]
  - KETOACIDOSIS [None]
  - PANCREATITIS [None]
